FAERS Safety Report 18570384 (Version 1)
Quarter: 2020Q4

REPORT INFORMATION
  Report Type: Report from Study
  Country: US (occurrence: US)
  Receive Date: 20201202
  Receipt Date: 20201202
  Transmission Date: 20210114
  Serious: Yes (Hospitalization, Other)
  Sender: FDA-Public Use
  Company Number: US-GW PHARMA-201604USGW0217

PATIENT

DRUGS (13)
  1. CLOBAZAM. [Suspect]
     Active Substance: CLOBAZAM
     Dosage: 10 MILLIGRAM, TID
     Route: 048
     Dates: start: 20160410, end: 20160415
  2. ROBINUL [Concomitant]
     Active Substance: GLYCOPYRROLATE
     Indication: SALIVARY HYPERSECRETION
     Dosage: 1 MILLIGRAM, TID
     Route: 048
     Dates: start: 201411
  3. ACETAMINOPHEN. [Concomitant]
     Active Substance: ACETAMINOPHEN
     Indication: PYREXIA
     Dosage: 1000 MILLIGRAM, PRN
     Route: 048
     Dates: start: 201407
  4. EPIDIOLEX [Suspect]
     Active Substance: CANNABIDIOL
     Indication: SEVERE MYOCLONIC EPILEPSY OF INFANCY
     Dosage: 21 MG/KG, 660 MILLIGRAM, BID
     Route: 048
     Dates: start: 20160322, end: 20160404
  5. CLOBAZAM. [Suspect]
     Active Substance: CLOBAZAM
     Indication: SEVERE MYOCLONIC EPILEPSY OF INFANCY
     Dosage: 20 MILLIGRAM, TID
     Route: 048
     Dates: start: 201312, end: 20160410
  6. KEPPRA [Concomitant]
     Active Substance: LEVETIRACETAM
     Indication: SEVERE MYOCLONIC EPILEPSY OF INFANCY
     Dosage: 500 MILLIGRAM, PRN
     Route: 065
     Dates: start: 20150901
  7. LACOSAMIDE. [Suspect]
     Active Substance: LACOSAMIDE
     Indication: SEVERE MYOCLONIC EPILEPSY OF INFANCY
     Dosage: 50 MILLIGRAM, QD AM, 100 MILLIGRAM QD PM
     Route: 048
     Dates: start: 201209
  8. DEPAKOTE [Suspect]
     Active Substance: DIVALPROEX SODIUM
     Indication: SEVERE MYOCLONIC EPILEPSY OF INFANCY
     Dosage: 250 MILLIGRAM, TID
     Route: 048
     Dates: start: 201412, end: 20160415
  9. EPIDIOLEX [Suspect]
     Active Substance: CANNABIDIOL
     Dosage: 20 MG/KG, 640 MILLIGRAM, BID
     Route: 048
     Dates: start: 20160405
  10. CLOBAZAM. [Suspect]
     Active Substance: CLOBAZAM
     Dosage: 10 MILLIGRAM, BID
     Route: 048
     Dates: start: 20160415
  11. SINGULAIR [Concomitant]
     Active Substance: MONTELUKAST SODIUM
     Indication: SEASONAL ALLERGY
     Dosage: 5 MILLIGRAM, QD
     Route: 048
     Dates: start: 200607
  12. ALBUTEROL 0.083% [Concomitant]
     Active Substance: ALBUTEROL
     Indication: SEASONAL ALLERGY
     Dosage: 1 DOSAGE FORMS, PRN DOSAGE FORMS
     Dates: start: 200412
  13. MUCINEX [Concomitant]
     Active Substance: GUAIFENESIN
     Indication: SEASONAL ALLERGY
     Dosage: 200 MILLIGRAM, PRN
     Route: 048
     Dates: start: 200507

REACTIONS (4)
  - Lethargy [Recovered/Resolved]
  - Ataxia [Recovered/Resolved]
  - Dehydration [Recovered/Resolved]
  - Transaminases increased [Recovered/Resolved]

NARRATIVE: CASE EVENT DATE: 20160404
